FAERS Safety Report 15586344 (Version 1)
Quarter: 2018Q4

REPORT INFORMATION
  Report Type: Spontaneous
  Country: IT (occurrence: IT)
  Receive Date: 20181105
  Receipt Date: 20181105
  Transmission Date: 20190205
  Serious: Yes (Hospitalization, Other)
  Sender: FDA-Public Use
  Company Number: IT-ACELLA PHARMACEUTICALS, LLC-2058392

PATIENT
  Age: 75 Year
  Sex: Male

DRUGS (4)
  1. AMITRIPTYLINE HYDROCHLORIDE. [Suspect]
     Active Substance: AMITRIPTYLINE HYDROCHLORIDE
  2. TRAZODONE [Suspect]
     Active Substance: TRAZODONE HYDROCHLORIDE
  3. GABAPENTIN. [Suspect]
     Active Substance: GABAPENTIN
  4. TRAMADOL. [Suspect]
     Active Substance: TRAMADOL

REACTIONS (7)
  - Serotonin syndrome [Unknown]
  - Syncope [Unknown]
  - Stupor [Unknown]
  - Pleural effusion [Unknown]
  - Tremor [Unknown]
  - Snoring [Unknown]
  - Pneumonia [Recovered/Resolved]
